FAERS Safety Report 14748374 (Version 1)
Quarter: 2018Q2

REPORT INFORMATION
  Report Type: Spontaneous
  Country: US (occurrence: US)
  Receive Date: 20180411
  Receipt Date: 20180411
  Transmission Date: 20180711
  Serious: No
  Sender: FDA-Public Use
  Company Number: US-AMGEN-USASP2017149347

PATIENT
  Age: 66 Year
  Sex: Female

DRUGS (1)
  1. PROLIA [Suspect]
     Active Substance: DENOSUMAB
     Indication: PRODUCT USED FOR UNKNOWN INDICATION
     Dosage: , Q6MO
     Route: 065
     Dates: start: 2015

REACTIONS (4)
  - Skin tightness [Unknown]
  - Erythema [Unknown]
  - Wrong technique in product usage process [Unknown]
  - Rash pruritic [Unknown]

NARRATIVE: CASE EVENT DATE: 201710
